FAERS Safety Report 4913665-2 (Version None)
Quarter: 2006Q1

REPORT INFORMATION
  Report Type: 
  Country: None (occurrence: None)
  Receive Date: 20060216
  Receipt Date: 20060207
  Transmission Date: 20060701
  Serious: Yes (Other)
  Sender: FDA-Public Use
  Company Number: DE-JNJFOC-20060100667

PATIENT
  Sex: Male
  Weight: 62.2 kg

DRUGS (15)
  1. RISPERDAL [Suspect]
     Route: 065
  2. RISPERDAL [Suspect]
     Indication: DRUG USE FOR UNKNOWN INDICATION
     Route: 065
  3. MIRTAZAPINE [Concomitant]
  4. ZOPICLONE [Concomitant]
  5. VERAPAMIL [Concomitant]
  6. DIGIMERCK [Concomitant]
  7. DYNORM [Concomitant]
  8. ALNA [Concomitant]
  9. SINUPRET FORTE [Concomitant]
  10. SINUPRET FORTE [Concomitant]
  11. SINUPRET FORTE [Concomitant]
  12. SINUPRET FORTE [Concomitant]
  13. SINUPRET FORTE [Concomitant]
  14. SINUPRET FORTE [Concomitant]
     Dosage: DOSE = DRAGEE
  15. MOVIGOL [Concomitant]
     Dosage: DOSE = POUCH

REACTIONS (1)
  - ELECTROCARDIOGRAM QT PROLONGED [None]
